FAERS Safety Report 18682635 (Version 1)
Quarter: 2020Q4

REPORT INFORMATION
  Report Type: Report from Study
  Country: None (occurrence: BR)
  Receive Date: 20201229
  Receipt Date: 20201229
  Transmission Date: 20210114
  Serious: Yes (Hospitalization, Disabling)
  Sender: FDA-Public Use
  Company Number: BR-ABBVIE-20K-020-3706482-00

PATIENT
  Sex: Female
  Weight: 87 kg

DRUGS (3)
  1. SKYRIZI [Suspect]
     Active Substance: RISANKIZUMAB-RZAA
     Indication: PSORIASIS
     Dosage: LOADING DOSE - WEEK 00
     Route: 058
     Dates: start: 20201213
  2. TAPAZOL (THIAMAZOLE) [Suspect]
     Active Substance: METHIMAZOLE
     Indication: THYROID DISORDER
     Route: 065
  3. HUMIRA [Suspect]
     Active Substance: ADALIMUMAB
     Indication: PRODUCT USED FOR UNKNOWN INDICATION
     Route: 058

REACTIONS (8)
  - Bone pain [Unknown]
  - Pruritus [Unknown]
  - Hypertension [Unknown]
  - Hypersensitivity [Unknown]
  - Swelling [Unknown]
  - Thyroid disorder [Unknown]
  - Bacterial infection [Unknown]
  - Gait inability [Unknown]

NARRATIVE: CASE EVENT DATE: 2020
